FAERS Safety Report 14540708 (Version 1)
Quarter: 2018Q1

REPORT INFORMATION
  Report Type: Spontaneous
  Country: US (occurrence: US)
  Receive Date: 20180216
  Receipt Date: 20180216
  Transmission Date: 20180509
  Serious: Yes (Other)
  Sender: FDA-Public Use
  Company Number: US-OTSUKA-DJ20060091

PATIENT
  Age: 16 Year
  Sex: Female
  Weight: 47.62 kg

DRUGS (4)
  1. ABILIFY [Suspect]
     Active Substance: ARIPIPRAZOLE
     Indication: PSYCHOTIC DISORDER
  2. BUPROPION. [Concomitant]
     Active Substance: BUPROPION
     Indication: PRODUCT USED FOR UNKNOWN INDICATION
     Dosage: UNK
     Route: 048
     Dates: start: 199905, end: 20051102
  3. RISPERDAL [Concomitant]
     Active Substance: RISPERIDONE
     Indication: PRODUCT USED FOR UNKNOWN INDICATION
     Dosage: UNK
     Route: 048
     Dates: start: 20020705, end: 20050906
  4. ABILIFY [Suspect]
     Active Substance: ARIPIPRAZOLE
     Indication: AUTISM SPECTRUM DISORDER
     Dosage: 10 MG, UNK
     Route: 048
     Dates: start: 20050906, end: 20051111

REACTIONS (4)
  - Musculoskeletal stiffness [Recovered/Resolved]
  - Dysphagia [Recovered/Resolved]
  - Dyspnoea [Recovered/Resolved]
  - Drooling [Recovered/Resolved]

NARRATIVE: CASE EVENT DATE: 20051112
